FAERS Safety Report 11579100 (Version 1)
Quarter: 2015Q3

REPORT INFORMATION
  Report Type: Spontaneous
  Country: RU (occurrence: RU)
  Receive Date: 20150930
  Receipt Date: 20150930
  Transmission Date: 20151125
  Serious: Yes (Other)
  Sender: FDA-Public Use
  Company Number: RU-PFIZER INC-2015295840

PATIENT
  Age: 30 Year
  Sex: Male

DRUGS (4)
  1. LYRICA [Suspect]
     Active Substance: PREGABALIN
     Indication: COMPLEX REGIONAL PAIN SYNDROME
     Dosage: 300 MG, DAILY
     Route: 048
     Dates: start: 2013, end: 2013
  2. LYRICA [Suspect]
     Active Substance: PREGABALIN
     Dosage: 300 MG, DAILY
     Route: 048
     Dates: start: 2013
  3. LYRICA [Suspect]
     Active Substance: PREGABALIN
     Dosage: 600 MG, DAILY
     Route: 048
     Dates: start: 2013
  4. LYRICA [Suspect]
     Active Substance: PREGABALIN
     Dosage: 900 MG, DAILY
     Route: 048
     Dates: start: 2013

REACTIONS (9)
  - Aggression [Recovered/Resolved]
  - Dependence [Recovered/Resolved]
  - Drug abuse [Recovered/Resolved]
  - Product use issue [Unknown]
  - Asthenia [Recovered/Resolved]
  - Disorientation [Recovered/Resolved]
  - Intentional overdose [Recovered/Resolved]
  - Drug intolerance [Recovered/Resolved]
  - Feeling abnormal [Recovered/Resolved]

NARRATIVE: CASE EVENT DATE: 2013
